FAERS Safety Report 9297241 (Version 3)
Quarter: 2013Q2

REPORT INFORMATION
  Report Type: Spontaneous
  Country: US (occurrence: US)
  Receive Date: 20130520
  Receipt Date: 20130617
  Transmission Date: 20140414
  Serious: Yes (Hospitalization)
  Sender: FDA-Public Use
  Company Number: US-BIOGENIDEC-2013BI042512

PATIENT
  Age: 26 Year
  Sex: Male
  Weight: 58 kg

DRUGS (6)
  1. TYSABRI [Suspect]
     Indication: CROHN^S DISEASE
     Route: 042
     Dates: start: 20111130
  2. ENDOCORT [Concomitant]
     Indication: CROHN^S DISEASE
  3. PREDNISONE [Concomitant]
     Indication: CROHN^S DISEASE
     Route: 048
  4. PREDNISONE [Concomitant]
     Indication: CROHN^S DISEASE
     Route: 048
  5. PROPOFOL [Concomitant]
     Indication: SEDATION
  6. TYLENOL [Concomitant]
     Indication: PAIN

REACTIONS (4)
  - Cytomegalovirus colitis [Recovered/Resolved]
  - Herpes zoster [Unknown]
  - Iron deficiency anaemia [Not Recovered/Not Resolved]
  - Headache [Unknown]
